FAERS Safety Report 14549474 (Version 3)
Quarter: 2018Q4

REPORT INFORMATION
  Report Type: Spontaneous
  Country: IT (occurrence: IT)
  Receive Date: 20180219
  Receipt Date: 20181218
  Transmission Date: 20190204
  Serious: Yes (Hospitalization, Other)
  Sender: FDA-Public Use
  Company Number: IT-CONCORDIA PHARMACEUTICALS INC.-GSH201802-000633

PATIENT
  Age: 84 Year
  Sex: Female

DRUGS (2)
  1. MEDROL [Concomitant]
     Active Substance: METHYLPREDNISOLONE
     Indication: PRODUCT USED FOR UNKNOWN INDICATION
  2. PLAQUENIL [Suspect]
     Active Substance: HYDROXYCHLOROQUINE SULFATE
     Indication: RHEUMATOID ARTHRITIS
     Route: 048
     Dates: start: 20170101, end: 20170619

REACTIONS (5)
  - Syncope [Unknown]
  - Rhabdomyolysis [Unknown]
  - Fall [Unknown]
  - Atrioventricular block [Unknown]
  - Sopor [Unknown]

NARRATIVE: CASE EVENT DATE: 20170619
